FAERS Safety Report 19227520 (Version 2)
Quarter: 2021Q2

REPORT INFORMATION
  Report Type: Report from Study
  Country: PL (occurrence: PL)
  Receive Date: 20210506
  Receipt Date: 20210521
  Transmission Date: 20210717
  Serious: Yes (Hospitalization, Other)
  Sender: FDA-Public Use
  Company Number: PL-EXELIXIS-XL18421039915

PATIENT
  Age: 56 Year
  Sex: Male
  Weight: 86 kg

DRUGS (13)
  1. EUTHYROX [Concomitant]
     Active Substance: LEVOTHYROXINE SODIUM
  2. NOVOTHYRAL [Concomitant]
     Active Substance: LEVOTHYROXINE SODIUM\LIOTHYRONINE SODIUM
  3. TIALORID [Concomitant]
  4. MAGNE B6 [Concomitant]
     Active Substance: MAGNESIUM\PYRIDOXINE
  5. XL184 [Suspect]
     Active Substance: CABOZANTINIB
     Indication: THYROID CANCER
     Dosage: 60 MG, QD
     Route: 048
     Dates: start: 20200717
  6. CALPEROS [Concomitant]
     Dosage: 1000 MG, QD
     Dates: end: 20210418
  7. ALFADIOL [Concomitant]
     Active Substance: ALFACALCIDOL
  8. VIGANTOLETTEN [Concomitant]
     Active Substance: CHOLECALCIFEROL
  9. CONCOR COR [Concomitant]
     Active Substance: BISOPROLOL FUMARATE
  10. CALPEROS [Concomitant]
     Dosage: 4000 MG, QD
     Dates: start: 20210419, end: 20210425
  11. REASEC [Concomitant]
     Active Substance: ATROPINE SULFATE\DIPHENOXYLATE HYDROCHLORIDE
  12. TELFEXO [Concomitant]
     Active Substance: FEXOFENADINE HYDROCHLORIDE
  13. FLIXOTIDE [Concomitant]
     Active Substance: FLUTICASONE PROPIONATE

REACTIONS (1)
  - Hypercalcaemia [Recovered/Resolved]

NARRATIVE: CASE EVENT DATE: 20210425
